FAERS Safety Report 19818280 (Version 1)
Quarter: 2021Q3

REPORT INFORMATION
  Report Type: Spontaneous
  Country: CA (occurrence: CA)
  Receive Date: 20210911
  Receipt Date: 20210911
  Transmission Date: 20211014
  Serious: Yes (Other)
  Sender: FDA-Public Use
  Company Number: CA-TEVA-2021-CA-1951075

PATIENT
  Age: 3 Month
  Sex: Male

DRUGS (10)
  1. CYTARABINE. [Suspect]
     Active Substance: CYTARABINE
     Indication: CHLOROMA
     Route: 065
  2. CYTARABINE. [Suspect]
     Active Substance: CYTARABINE
     Indication: BRAIN SARCOMA
     Route: 065
  3. DAUNORUBICIN [Suspect]
     Active Substance: DAUNORUBICIN
     Indication: CHLOROMA
     Route: 065
  4. ETOPOSIDE. [Suspect]
     Active Substance: ETOPOSIDE
     Indication: CHLOROMA
     Route: 065
  5. FLUDARABINE PHOSPHATE. [Suspect]
     Active Substance: FLUDARABINE PHOSPHATE
     Indication: BRAIN SARCOMA
     Route: 065
  6. CYTARABINE. [Suspect]
     Active Substance: CYTARABINE
     Route: 037
  7. METHOTREXATE. [Suspect]
     Active Substance: METHOTREXATE
     Indication: BRAIN SARCOMA
     Route: 065
  8. ASPARAGINASE [Suspect]
     Active Substance: ASPARAGINASE
     Indication: CHLOROMA
     Route: 030
  9. CYTARABINE. [Suspect]
     Active Substance: CYTARABINE
     Route: 065
  10. HYDROCORTISONE. [Suspect]
     Active Substance: HYDROCORTISONE
     Indication: BRAIN SARCOMA
     Route: 065

REACTIONS (8)
  - Infection [Unknown]
  - Brain sarcoma [Unknown]
  - General physical health deterioration [Unknown]
  - Septic shock [Unknown]
  - Cerebellar tumour [Unknown]
  - Hydrocephalus [Unknown]
  - Leukaemia recurrent [Unknown]
  - Pyrexia [Unknown]
